FAERS Safety Report 8196173-8 (Version None)
Quarter: 2012Q1

REPORT INFORMATION
  Report Type: 
  Country: None (occurrence: None)
  Receive Date: 20120223
  Receipt Date: 20110609
  Transmission Date: 20120608
  Serious: Yes (Life-Threatening, Hospitalization)
  Sender: FDA-Public Use
  Company Number: WAES 1106USA01166

PATIENT
  Sex: Male

DRUGS (1)
  1. ZOCOR [Suspect]
     Indication: LIPIDS
     Dosage: 80 MG/DAILY/PO UNK/UNK/UNK
     Route: 048

REACTIONS (2)
  - RHABDOMYOLYSIS [None]
  - DRUG INEFFECTIVE [None]
